FAERS Safety Report 9057106 (Version 1)
Quarter: 2013Q1

REPORT INFORMATION
  Report Type: Report from Study
  Country: US (occurrence: US)
  Receive Date: 20130131
  Receipt Date: 20130131
  Transmission Date: 20140127
  Serious: No
  Sender: FDA-Public Use
  Company Number: US-ABBOTT-12P-163-0995213-00

PATIENT
  Age: 46 Year
  Sex: Male

DRUGS (5)
  1. HUMIRA [Suspect]
     Indication: CROHN^S DISEASE
     Dosage: ORIGINAL ORDER WAS 160 MG-HAD MISFIRE
     Dates: start: 20120928
  2. HUMIRA [Suspect]
     Dosage: 80 MG WAS ORDERED-HAD MISFIRE
     Dates: start: 20121012
  3. ASACOL [Concomitant]
     Indication: CROHN^S DISEASE
     Dosage: 2 TABS IN AM, 2 TABS IN AFTERNOON, AND 2 TABS IN PM
     Route: 048
  4. BABY ASPIRIN [Concomitant]
     Indication: PROPHYLAXIS
     Route: 048
  5. VITAMINS [Concomitant]
     Indication: VITAMIN SUPPLEMENTATION
     Dosage: DAILY
     Route: 048

REACTIONS (2)
  - Device malfunction [Unknown]
  - Weight decreased [Unknown]
